FAERS Safety Report 9783146 (Version 1)
Quarter: 2013Q4

REPORT INFORMATION
  Report Type: Other
  Country: US (occurrence: US)
  Receive Date: 20131226
  Receipt Date: 20131226
  Transmission Date: 20140711
  Serious: Yes (Other)
  Sender: FDA-Public Use
  Company Number: US-SHIRE-ALL1-2013-08873

PATIENT
  Sex: Female

DRUGS (1)
  1. VPRIV [Suspect]
     Indication: GAUCHER^S DISEASE
     Dosage: 3600 IU (9 VIALS), OTHER (BI-MONTHLY)
     Route: 041
     Dates: start: 20100607

REACTIONS (2)
  - Splenomegaly [Unknown]
  - Hepatomegaly [Unknown]
